FAERS Safety Report 9280522 (Version 2)
Quarter: 2013Q2

REPORT INFORMATION
  Report Type: Spontaneous
  Country: US (occurrence: US)
  Receive Date: 20130509
  Receipt Date: 20130604
  Transmission Date: 20140414
  Serious: No
  Sender: FDA-Public Use
  Company Number: US-009507513-1305USA004593

PATIENT
  Age: 56 Year
  Sex: Female

DRUGS (6)
  1. DULERA [Suspect]
     Dosage: 2 DF, BID  (2 INHALATIONS TWICE DAILY)
     Route: 055
     Dates: start: 20130428
  2. DULERA [Suspect]
     Dosage: 2 DF, BID (2 INHALATIONS TWICE DAILY)
     Route: 055
     Dates: start: 20110712
  3. AMLODIPINE [Concomitant]
     Dosage: UNK
  4. BUDESONIDE [Concomitant]
     Dosage: UNK
  5. DUONEB [Concomitant]
     Dosage: UNK
  6. ALBUTEROL [Concomitant]
     Dosage: UNK

REACTIONS (3)
  - Dysgeusia [Recovered/Resolved]
  - Product odour abnormal [Recovered/Resolved]
  - Product taste abnormal [Recovered/Resolved]
